FAERS Safety Report 7611250-5 (Version None)
Quarter: 2011Q3

REPORT INFORMATION
  Report Type: 
  Country: None (occurrence: None)
  Receive Date: 20110707
  Receipt Date: 20110622
  Transmission Date: 20111222
  Serious: Yes (Hospitalization, Other)
  Sender: FDA-Public Use
  Company Number: 2011MA007925

PATIENT
  Age: 15 Year
  Sex: Female

DRUGS (2)
  1. QUETIAPINE [Suspect]
     Indication: PRODUCT USED FOR UNKNOWN INDICATION
  2. CLONIDINE HCL [Suspect]
     Indication: PRODUCT USED FOR UNKNOWN INDICATION

REACTIONS (15)
  - MULTIPLE DRUG OVERDOSE [None]
  - UNRESPONSIVE TO STIMULI [None]
  - INCOHERENT [None]
  - MYOCARDITIS [None]
  - SELF-MEDICATION [None]
  - BUNDLE BRANCH BLOCK LEFT [None]
  - TOXICITY TO VARIOUS AGENTS [None]
  - HYPOTENSION [None]
  - SOMNOLENCE [None]
  - LETHARGY [None]
  - TEARFULNESS [None]
  - DELIRIUM [None]
  - TACHYCARDIA [None]
  - RESPIRATORY RATE INCREASED [None]
  - ELECTROCARDIOGRAM QT PROLONGED [None]
